FAERS Safety Report 5191386-1 (Version None)
Quarter: 2006Q4

REPORT INFORMATION
  Report Type: 
  Country: None (occurrence: None)
  Receive Date: 20061226
  Receipt Date: 20030902
  Transmission Date: 20070319
  Serious: Yes (Hospitalization)
  Sender: FDA-Public Use
  Company Number: FR-MERCK-0309USA00331

PATIENT
  Age: 93 Year
  Sex: Female

DRUGS (14)
  1. MODURETIC 5-50 [Suspect]
     Route: 048
     Dates: start: 19920615, end: 20030421
  2. TILDIEM [Suspect]
     Route: 048
     Dates: start: 19970615, end: 20030506
  3. MINISINTROM [Suspect]
     Route: 048
     Dates: start: 19920615, end: 20030421
  4. AMIODARONE [Suspect]
     Route: 048
     Dates: start: 20010615, end: 20030506
  5. DAFLON (DIOSMIN (+) HESPERIDIN) [Concomitant]
     Route: 065
     Dates: start: 20021015, end: 20030421
  6. NITROGLYCERIN [Concomitant]
     Route: 065
  7. MOLSIDOMINE [Concomitant]
     Route: 065
  8. LOXEN [Concomitant]
     Route: 065
     Dates: start: 20030421
  9. LASIX [Concomitant]
     Route: 065
     Dates: start: 20030421
  10. ASPEGIC 1000 [Concomitant]
     Route: 065
     Dates: start: 20030421
  11. POTASSIUM (UNSPECIFIED) [Concomitant]
     Route: 065
     Dates: start: 20030501
  12. SELOKEN [Concomitant]
     Route: 065
  13. DISCOTRINE [Concomitant]
     Route: 065
  14. NITROGLYCERIN [Concomitant]
     Route: 065

REACTIONS (11)
  - BRADYCARDIA [None]
  - CHEST PAIN [None]
  - CONVULSION [None]
  - DRUG INTERACTION [None]
  - FALL [None]
  - HYPOKALAEMIA [None]
  - HYPOPROTHROMBINAEMIA [None]
  - MALAISE [None]
  - RENAL IMPAIRMENT [None]
  - RIB FRACTURE [None]
  - TORSADE DE POINTES [None]
